FAERS Safety Report 5031531-1 (Version None)
Quarter: 2006Q2

REPORT INFORMATION
  Report Type: 
  Country: None (occurrence: None)
  Receive Date: 20060621
  Receipt Date: 20060608
  Transmission Date: 20061013
  Serious: Yes (Death, Other)
  Sender: FDA-Public Use
  Company Number: PHBS2006SG08651

PATIENT
  Age: 31 Year
  Sex: Female

DRUGS (1)
  1. GLEEVEC [Suspect]
     Indication: CHRONIC MYELOID LEUKAEMIA
     Dosage: 400 MG/D
     Route: 048
     Dates: start: 20041001, end: 20060501

REACTIONS (2)
  - DEATH [None]
  - WHITE BLOOD CELL COUNT INCREASED [None]
